FAERS Safety Report 5249824-1 (Version None)
Quarter: 2007Q1

REPORT INFORMATION
  Report Type: 
  Country: None (occurrence: None)
  Receive Date: 20070228
  Receipt Date: 20070215
  Transmission Date: 20070707
  Serious: Yes (Hospitalization)
  Sender: FDA-Public Use
  Company Number: JP-AMGEN-US208386

PATIENT
  Sex: Female

DRUGS (20)
  1. PANITUMUMAB [Suspect]
     Indication: COLORECTAL CANCER
     Route: 041
     Dates: start: 20060116, end: 20070110
  2. HIRUDOID [Suspect]
     Dates: start: 20061118
  3. CANDESARTAN CILEXETIL [Concomitant]
     Route: 065
     Dates: start: 20060209
  4. FAMOTIDINE [Concomitant]
     Route: 065
     Dates: start: 20060324
  5. MINOCYCLINE HCL [Concomitant]
     Route: 065
     Dates: start: 20061227
  6. RIBOFLAVIN [Concomitant]
     Route: 065
     Dates: start: 20061213
  7. PYDOXAL [Concomitant]
     Route: 065
     Dates: start: 20061213
  8. MAGNESIUM OXIDE [Concomitant]
     Route: 065
     Dates: start: 20041125
  9. PURSENNID [Concomitant]
     Route: 065
     Dates: start: 20041127
  10. LAXOBERON [Concomitant]
     Route: 054
     Dates: start: 20050210
  11. OXYCONTIN [Concomitant]
     Route: 065
     Dates: start: 20061108
  12. MORPHINE [Concomitant]
     Route: 065
     Dates: start: 20061108
  13. LOXOPROFEN SODIUM [Concomitant]
     Route: 065
     Dates: start: 20060128
  14. CLONAZEPAM [Concomitant]
     Route: 065
     Dates: start: 20061106
  15. HIRUDOID [Concomitant]
     Route: 065
     Dates: start: 20061110
  16. DIFLORASONE DIACETATE [Concomitant]
     Route: 065
     Dates: start: 20061110
  17. ALCLOMETASONE DIPROPIONATE [Concomitant]
     Route: 065
     Dates: start: 20061122
  18. SELBEX [Concomitant]
     Route: 065
     Dates: start: 20070128
  19. AMOBAN [Concomitant]
     Route: 065
     Dates: start: 20070127
  20. POLIVITAMINE [Concomitant]
     Route: 065

REACTIONS (2)
  - ANAEMIA [None]
  - MALAISE [None]
